FAERS Safety Report 6079980-7 (Version None)
Quarter: 2009Q1

REPORT INFORMATION
  Report Type: 
  Country: None (occurrence: None)
  Receive Date: 20090217
  Receipt Date: 20090116
  Transmission Date: 20090719
  Serious: No
  Sender: FDA-Public Use
  Company Number: A0757234A

PATIENT
  Age: 66 Year
  Sex: Female

DRUGS (5)
  1. COREG CR [Suspect]
     Indication: HYPERTENSION
     Dosage: 40MG PER DAY
     Route: 048
     Dates: start: 20080716
  2. CLONIDINE HCL [Concomitant]
  3. PANTOPRAZOLE [Concomitant]
  4. SYNTHROID [Concomitant]
  5. CLONAZEPAM [Concomitant]

REACTIONS (2)
  - BLOOD PRESSURE INCREASED [None]
  - PRODUCT QUALITY ISSUE [None]
